FAERS Safety Report 10455459 (Version 1)
Quarter: 2014Q3

REPORT INFORMATION
  Report Type: Spontaneous
  Country: US (occurrence: None)
  Receive Date: 20140915
  Receipt Date: 20140915
  Transmission Date: 20150326
  Serious: Yes (Death, Hospitalization)
  Sender: FDA-Public Use
  Company Number: None

PATIENT
  Age: 72 Year
  Sex: Female
  Weight: 69.85 kg

DRUGS (4)
  1. ADRIAMYCIN [Concomitant]
     Active Substance: DOXORUBICIN HYDROCHLORIDE
  2. BLEOMYCIN [Suspect]
     Active Substance: BLEOMYCIN SULFATE
     Indication: HODGKIN^S DISEASE
     Dosage: 17 UNITS (10 UNITS/M2) EVERY TWO WEEKS INTRAVENOUS
     Route: 042
     Dates: start: 20140306, end: 20140515
  3. VINBLASTINE [Concomitant]
     Active Substance: VINBLASTINE
  4. BLEOMYCIN [Concomitant]
     Active Substance: BLEOMYCIN SULFATE

REACTIONS (3)
  - Pneumonitis [None]
  - Diffuse alveolar damage [None]
  - Toxicity to various agents [None]

NARRATIVE: CASE EVENT DATE: 20140617
